FAERS Safety Report 8552608-X (Version None)
Quarter: 2012Q3

REPORT INFORMATION
  Report Type: 
  Country: None (occurrence: None)
  Receive Date: 20120731
  Receipt Date: 20120725
  Transmission Date: 20120928
  Serious: No
  Sender: FDA-Public Use
  Company Number: US-PFIZER INC-2012180538

PATIENT
  Sex: Male
  Weight: 82 kg

DRUGS (7)
  1. NEURONTIN [Suspect]
     Indication: HEMIPLEGIA
     Dosage: 300 MG, 3X/DAY
     Route: 048
     Dates: start: 20090101, end: 20120614
  2. NEURONTIN [Suspect]
     Dosage: 600 MG, 3X/DAY
     Dates: start: 20120614, end: 20120719
  3. GLIPIZIDE [Concomitant]
     Indication: DIABETES MELLITUS
     Dosage: UNK
  4. CARVEDILOL [Concomitant]
     Indication: CARDIAC DISORDER
     Dosage: 3.125 MG, 2X/DAY
  5. SYNTHROID [Concomitant]
     Indication: HYPOTHYROIDISM
     Dosage: 100 UG, UNK
  6. ASPIRIN [Concomitant]
     Dosage: 325 MG, 1X/DAY
  7. CRESTOR [Concomitant]
     Indication: BLOOD CHOLESTEROL INCREASED
     Dosage: 10 MG, 1X/DAY

REACTIONS (5)
  - MOVEMENT DISORDER [None]
  - PAIN [None]
  - BOWEL MOVEMENT IRREGULARITY [None]
  - CONSTIPATION [None]
  - DRUG INEFFECTIVE [None]
